FAERS Safety Report 4974235-3 (Version None)
Quarter: 2006Q2

REPORT INFORMATION
  Report Type: 
  Country: None (occurrence: None)
  Receive Date: 20060417
  Receipt Date: 20051011
  Transmission Date: 20061013
  Serious: Yes (Hospitalization)
  Sender: FDA-Public Use
  Company Number: US-MERCK-0510USA06652

PATIENT
  Age: 46 Year
  Sex: Female
  Weight: 75 kg

DRUGS (14)
  1. VIOXX [Suspect]
     Indication: CARPAL TUNNEL SYNDROME
     Route: 048
     Dates: start: 20000101, end: 20040427
  2. CODEINE PHOSPHATE AND PROMETHAZINE HYDROCHLORIDE [Concomitant]
     Route: 065
  3. ALBUTEROL [Concomitant]
     Route: 065
  4. CYCLOBENZAPRINE HYDROCHLORIDE [Concomitant]
     Route: 065
  5. ACETAMINOPHEN AND HYDROCODONE BITARTRATE [Concomitant]
     Route: 065
  6. COUMADIN [Concomitant]
     Route: 065
  7. NEOMYCIN [Concomitant]
     Route: 065
  8. FLAGYL [Concomitant]
     Route: 065
  9. LEVAQUIN [Concomitant]
     Route: 065
  10. FLOVENT [Concomitant]
     Route: 065
  11. ATROVENT [Concomitant]
     Route: 065
  12. AMBIEN [Concomitant]
     Route: 065
  13. WARFARIN [Concomitant]
     Route: 065
  14. HORMONAL CONTRACEPTIVES (UNSPECIFIED) [Concomitant]
     Route: 065

REACTIONS (13)
  - ARTHRALGIA [None]
  - BACK PAIN [None]
  - CHEST PAIN [None]
  - DEEP VEIN THROMBOSIS [None]
  - DYSPNOEA [None]
  - HYPERCOAGULATION [None]
  - HYPERSENSITIVITY [None]
  - NECK INJURY [None]
  - NECK MASS [None]
  - OEDEMA PERIPHERAL [None]
  - PULMONARY EMBOLISM [None]
  - SHOULDER PAIN [None]
  - UTERINE LEIOMYOMA [None]
